FAERS Safety Report 6281069-9 (Version None)
Quarter: 2009Q3

REPORT INFORMATION
  Report Type: 
  Country: None (occurrence: None)
  Receive Date: 20090724
  Receipt Date: 20090325
  Transmission Date: 20100115
  Serious: No
  Sender: FDA-Public Use
  Company Number: A0775361A

PATIENT
  Age: 72 Year
  Sex: Female

DRUGS (6)
  1. AVANDIA [Suspect]
     Dosage: 4MG PER DAY
     Route: 048
  2. COUMADIN [Concomitant]
  3. VESICARE [Concomitant]
  4. VYTORIN [Concomitant]
  5. LANTUS [Concomitant]
  6. PAIN MEDICATION [Concomitant]

REACTIONS (2)
  - ASTHENIA [None]
  - FATIGUE [None]
